FAERS Safety Report 5690091-2 (Version None)
Quarter: 2008Q1

REPORT INFORMATION
  Report Type: 
  Country: None (occurrence: None)
  Receive Date: 20080331
  Receipt Date: 20080331
  Transmission Date: 20080703
  Serious: Yes (Life-Threatening, Hospitalization)
  Sender: FDA-Public Use
  Company Number: None

PATIENT
  Age: 78 Year
  Sex: Female
  Weight: 55.7924 kg

DRUGS (2)
  1. ROCEPHIN [Suspect]
     Indication: PNEUMONIA
     Dosage: INTRACAVERN
     Route: 017
  2. ROCEPHIN [Suspect]
     Indication: PYREXIA
     Dosage: INTRACAVERN
     Route: 017

REACTIONS (2)
  - CHOLELITHIASIS [None]
  - PANCREATITIS [None]
